FAERS Safety Report 14430378 (Version 2)
Quarter: 2018Q2

REPORT INFORMATION
  Report Type: Spontaneous
  Country: TW (occurrence: TW)
  Receive Date: 20180124
  Receipt Date: 20180430
  Transmission Date: 20180711
  Serious: Yes (Hospitalization, Other)
  Sender: FDA-Public Use
  Company Number: TW-ALEXION-A201800517

PATIENT
  Age: 57 Year
  Sex: Female
  Weight: 53.4 kg

DRUGS (2)
  1. SOLIRIS [Suspect]
     Active Substance: ECULIZUMAB
     Dosage: UNK, UNK
     Route: 065
  2. SOLIRIS [Suspect]
     Active Substance: ECULIZUMAB
     Indication: ATYPICAL HAEMOLYTIC URAEMIC SYNDROME
     Dosage: UNK, UNK
     Route: 065

REACTIONS (7)
  - Hemiplegia [Unknown]
  - Blood creatinine increased [Unknown]
  - Facial paralysis [Unknown]
  - Aphasia [Unknown]
  - Cerebral haemorrhage [Not Recovered/Not Resolved]
  - Putamen haemorrhage [Unknown]
  - Blood lactate dehydrogenase increased [Unknown]

NARRATIVE: CASE EVENT DATE: 20180113
